FAERS Safety Report 7169650-6 (Version None)
Quarter: 2010Q4

REPORT INFORMATION
  Report Type: 
  Country: None (occurrence: None)
  Receive Date: 20101217
  Receipt Date: 20101208
  Transmission Date: 20110411
  Serious: Yes (Hospitalization)
  Sender: FDA-Public Use
  Company Number: JP-JNJFOC-20101204403

PATIENT
  Age: 79 Year
  Sex: Male

DRUGS (5)
  1. TOPIRAMATE [Suspect]
     Indication: EPILEPSY
     Route: 048
  2. TOPIRAMATE [Suspect]
     Route: 048
  3. DEPAKENE [Suspect]
     Indication: EPILEPSY
     Route: 048
  4. DEPAKENE [Suspect]
     Route: 048
  5. ANTIEPILEPTIC, NOT SPECIFIED [Suspect]
     Indication: EPILEPSY
     Route: 065

REACTIONS (1)
  - HYPERAMMONAEMIA [None]
